FAERS Safety Report 6933631-5 (Version None)
Quarter: 2010Q3

REPORT INFORMATION
  Report Type: 
  Country: None (occurrence: None)
  Receive Date: 20100820
  Receipt Date: 20100812
  Transmission Date: 20110219
  Serious: Yes (Other)
  Sender: FDA-Public Use
  Company Number: US-JNJFOC-20100804986

PATIENT
  Age: 64 Year
  Sex: Female

DRUGS (3)
  1. ELMIRON [Suspect]
     Indication: CYSTITIS INTERSTITIAL
     Route: 048
  2. AMITRIPTYLINE HCL [Concomitant]
     Indication: BLADDER PAIN
     Route: 065
  3. NASORAL [Concomitant]
     Indication: MULTIPLE ALLERGIES
     Route: 065

REACTIONS (1)
  - BREAST CANCER [None]
